FAERS Safety Report 6570175-7 (Version None)
Quarter: 2010Q1

REPORT INFORMATION
  Report Type: 
  Country: None (occurrence: None)
  Receive Date: 20100204
  Receipt Date: 20100127
  Transmission Date: 20100710
  Serious: Yes (Death, Hospitalization, Other)
  Sender: FDA-Public Use
  Company Number: DE-PFIZER INC-2009308884

PATIENT
  Age: 72 Year
  Sex: Female

DRUGS (8)
  1. THELIN [Suspect]
     Indication: PULMONARY ARTERIAL HYPERTENSION
     Dosage: UNK
     Route: 048
  2. REVATIO [Suspect]
     Indication: PULMONARY ARTERIAL HYPERTENSION
     Dosage: 20 MG, 3X/DAY
     Route: 048
  3. MARCUMAR [Concomitant]
     Indication: ATRIAL FIBRILLATION
  4. CARVEDILOL [Concomitant]
     Dosage: 2 X 12.5 UNK, UNK
  5. TORASEMIDE [Concomitant]
     Dosage: 10 MG IN THE MORNING, 5 MG AT NOON
  6. PANTOPRAZOL [Concomitant]
     Dosage: 40 MG, UNK
  7. RISEDRONATE SODIUM [Concomitant]
     Dosage: 35 MG, WEEKLY
  8. CALCIUM WITH VITAMIN D [Concomitant]

REACTIONS (5)
  - PANCREATITIS [None]
  - PNEUMONIA [None]
  - PULMONARY HAEMORRHAGE [None]
  - SUBILEUS [None]
  - VENTRICULAR FIBRILLATION [None]
